FAERS Safety Report 11875619 (Version 3)
Quarter: 2016Q1

REPORT INFORMATION
  Report Type: Spontaneous
  Country: US (occurrence: US)
  Receive Date: 20151229
  Receipt Date: 20160218
  Transmission Date: 20160526
  Serious: Yes (Other)
  Sender: FDA-Public Use
  Company Number: US-TEVA-621805USA

PATIENT
  Age: 50 Year
  Sex: Male

DRUGS (7)
  1. RISPERIDONE. [Suspect]
     Active Substance: RISPERIDONE
     Indication: PARANOIA
     Route: 065
  2. RISPERIDONE. [Interacting]
     Active Substance: RISPERIDONE
     Indication: PARANOIA
     Route: 065
  3. EMTRICITABINE [Concomitant]
     Active Substance: EMTRICITABINE
  4. BACLOFEN. [Concomitant]
     Active Substance: BACLOFEN
  5. RITONAVIR. [Interacting]
     Active Substance: RITONAVIR
     Route: 065
  6. DARUNAVIR [Concomitant]
     Active Substance: DARUNAVIR
  7. TENOVIR [Concomitant]

REACTIONS (2)
  - Drug interaction [Unknown]
  - Angioedema [Recovered/Resolved]
